FAERS Safety Report 5678441-4 (Version None)
Quarter: 2008Q1

REPORT INFORMATION
  Report Type: 
  Country: None (occurrence: None)
  Receive Date: 20080325
  Receipt Date: 20080314
  Transmission Date: 20080703
  Serious: Yes (Hospitalization)
  Sender: FDA-Public Use
  Company Number: US-JNJFOC-20080303754

PATIENT
  Sex: Male
  Weight: 79.83 kg

DRUGS (14)
  1. FENTANYL TRANSDERMAL SYSTEM [Suspect]
     Route: 062
  2. FENTANYL TRANSDERMAL SYSTEM [Suspect]
     Indication: BACK PAIN
     Route: 062
  3. LIQUID OXYCODONE [Concomitant]
     Indication: PAIN
     Route: 048
  4. LIDODERM [Concomitant]
     Indication: PAIN
     Route: 062
  5. FUROSEMIDE [Concomitant]
     Indication: FLUID RETENTION
     Route: 048
  6. POTASSIUM CHLORIDE [Concomitant]
     Route: 048
  7. SPIRONLACTONE [Concomitant]
     Route: 048
  8. TOPAMAX [Concomitant]
     Route: 048
  9. PROTONIX [Concomitant]
     Route: 048
  10. BUSPIRONE HCL [Concomitant]
     Indication: ANXIETY
     Route: 048
  11. SEROQUEL [Concomitant]
     Indication: SLEEP DISORDER THERAPY
     Route: 048
  12. CITALOPRAM [Concomitant]
     Route: 048
  13. NADOLOL [Concomitant]
     Indication: CARDIAC DISORDER
     Route: 048
  14. TRAZODONE HCL [Concomitant]
     Indication: SLEEP DISORDER THERAPY
     Route: 048

REACTIONS (4)
  - DEHYDRATION [None]
  - DRUG INEFFECTIVE [None]
  - OVERDOSE [None]
  - SEDATION [None]
